FAERS Safety Report 10020008 (Version 1)
Quarter: 2014Q1

REPORT INFORMATION
  Report Type: Spontaneous
  Country: US (occurrence: US)
  Receive Date: 20140318
  Receipt Date: 20140318
  Transmission Date: 20141002
  Serious: Yes (Hospitalization, Disabling)
  Sender: FDA-Public Use
  Company Number: US-B.I. PHARMACEUTICALS,INC./RIDGEFIELD-2014-BI-11260BP

PATIENT
  Age: 95 Year
  Sex: Male

DRUGS (3)
  1. AGGRENOX [Suspect]
     Indication: CARDIOVASCULAR EVENT PROPHYLAXIS
     Dosage: STRENGTH: 25 MG / 200 MG; DAILY DOSE: 50 MG/ 400 MG
     Route: 048
     Dates: start: 2009
  2. CRESTOR [Concomitant]
     Route: 048
  3. TAMSULOSIN [Concomitant]
     Indication: PROSTATIC DISORDER
     Route: 048

REACTIONS (5)
  - Dehydration [Recovered/Resolved]
  - Pneumonia aspiration [Not Recovered/Not Resolved]
  - Abasia [Not Recovered/Not Resolved]
  - Muscle rupture [Not Recovered/Not Resolved]
  - Haematoma [Not Recovered/Not Resolved]
